FAERS Safety Report 24744096 (Version 1)
Quarter: 2024Q4

REPORT INFORMATION
  Report Type: Spontaneous
  Country: GB (occurrence: GB)
  Receive Date: 20241217
  Receipt Date: 20241217
  Transmission Date: 20250114
  Serious: Yes (Other)
  Sender: ALEXION PHARMACEUTICALS
  Company Number: GB-MHRA-TPP13552896C9253398YC1733993596250

PATIENT
  Age: 50 Year
  Weight: 51 kg

DRUGS (18)
  1. TICAGRELOR [Suspect]
     Active Substance: TICAGRELOR
     Indication: Ill-defined disorder
     Route: 065
  2. TICAGRELOR [Suspect]
     Active Substance: TICAGRELOR
     Route: 065
  3. TICAGRELOR [Suspect]
     Active Substance: TICAGRELOR
     Route: 065
  4. TICAGRELOR [Suspect]
     Active Substance: TICAGRELOR
     Route: 065
  5. DOXYCYCLINE [Concomitant]
     Active Substance: DOXYCYCLINE
     Indication: Ill-defined disorder
     Dosage: TAKE TWO CAPSULES NOW ON DAY 1 THEN TAKE ONE CA...
     Route: 065
  6. DOXYCYCLINE [Concomitant]
     Active Substance: DOXYCYCLINE
     Dosage: TAKE TWO CAPSULES NOW ON DAY 1 THEN TAKE ONE CA...
     Route: 065
  7. DILTIAZEM HYDROCHLORIDE [Concomitant]
     Active Substance: DILTIAZEM HYDROCHLORIDE
     Indication: Ill-defined disorder
     Dosage: TAKE ONE DAILY
     Route: 065
  8. DILTIAZEM HYDROCHLORIDE [Concomitant]
     Active Substance: DILTIAZEM HYDROCHLORIDE
     Dosage: TAKE ONE DAILY
     Route: 065
  9. VENTOLIN [Concomitant]
     Active Substance: ALBUTEROL SULFATE
     Indication: Ill-defined disorder
     Dosage: INHALE 1 DOSE AS NEEDED
     Route: 065
  10. VENTOLIN [Concomitant]
     Active Substance: ALBUTEROL SULFATE
     Dosage: INHALE 1 DOSE AS NEEDED
     Route: 065
  11. SERETIDE [Concomitant]
     Active Substance: FLUTICASONE PROPIONATE\SALMETEROL XINAFOATE
     Indication: Ill-defined disorder
     Dosage: INHALE 1 DOSE TWICE DAILY
     Route: 065
  12. SERETIDE [Concomitant]
     Active Substance: FLUTICASONE PROPIONATE\SALMETEROL XINAFOATE
     Dosage: INHALE 1 DOSE TWICE DAILY
     Route: 065
  13. ASPIRIN [Concomitant]
     Active Substance: ASPIRIN
     Indication: Ill-defined disorder
     Dosage: TAKE ONE DAILY
     Route: 065
  14. ASPIRIN [Concomitant]
     Active Substance: ASPIRIN
     Dosage: TAKE ONE DAILY
     Route: 065
  15. CITALOPRAM [Concomitant]
     Active Substance: CITALOPRAM
     Indication: Ill-defined disorder
     Dosage: TAKE ONE AT NIGHT
     Route: 065
  16. CITALOPRAM [Concomitant]
     Active Substance: CITALOPRAM
     Dosage: TAKE ONE AT NIGHT
     Route: 065
  17. NITROGLYCERIN [Concomitant]
     Active Substance: NITROGLYCERIN
     Indication: Ill-defined disorder
     Dosage: 1 TO 2 SPRAYS PRN WITH A MINIMUM DOSAGE INTERVA...
     Route: 065
  18. NITROGLYCERIN [Concomitant]
     Active Substance: NITROGLYCERIN
     Dosage: 1 TO 2 SPRAYS PRN WITH A MINIMUM DOSAGE INTERVA...
     Route: 065

REACTIONS (2)
  - Joint swelling [Recovered/Resolved]
  - Rash [Recovered/Resolved]
